FAERS Safety Report 8071539-5 (Version None)
Quarter: 2012Q1

REPORT INFORMATION
  Report Type: 
  Country: None (occurrence: None)
  Receive Date: 20120125
  Receipt Date: 20120109
  Transmission Date: 20120608
  Serious: Yes (Hospitalization, Other)
  Sender: FDA-Public Use
  Company Number: PHHY2011DE108824

PATIENT
  Sex: Male
  Weight: 55 kg

DRUGS (8)
  1. ZOMETA [Suspect]
     Indication: BONE DISORDER
     Route: 042
     Dates: start: 20110830
  2. ALIMTA [Suspect]
     Dosage: 500 MG/M2, UNK
     Route: 042
     Dates: start: 20111102
  3. ALIMTA [Suspect]
     Indication: LUNG NEOPLASM MALIGNANT
     Dosage: 792 MG, DAILY
     Route: 042
     Dates: start: 20111011
  4. GRANISETRON [Concomitant]
     Route: 048
     Dates: start: 20111004
  5. CARBOPLATIN [Suspect]
     Indication: LUNG NEOPLASM MALIGNANT
     Dosage: 450 MG, DAILY
     Route: 042
     Dates: start: 20111011
  6. CARBOPLATIN [Suspect]
     Dosage: 248 MG/M2, UNK
     Route: 042
     Dates: start: 20111102
  7. OMEPRAZOLE [Concomitant]
     Route: 048
     Dates: start: 20111004
  8. FOLSAN [Concomitant]
     Indication: LUNG NEOPLASM MALIGNANT
     Dosage: 0.8 MG, DAILY
     Route: 048
     Dates: start: 20111004

REACTIONS (3)
  - ORAL CANDIDIASIS [None]
  - GENERAL PHYSICAL HEALTH DETERIORATION [None]
  - FATIGUE [None]
